FAERS Safety Report 8154110-6 (Version None)
Quarter: 2012Q1

REPORT INFORMATION
  Report Type: 
  Country: None (occurrence: None)
  Receive Date: 20120221
  Receipt Date: 20120214
  Transmission Date: 20120608
  Serious: Yes (Hospitalization)
  Sender: FDA-Public Use
  Company Number: US-MERCK-1202USA02272

PATIENT
  Age: 80 Year
  Sex: Female
  Weight: 108 kg

DRUGS (8)
  1. JANUVIA [Suspect]
     Indication: TYPE 2 DIABETES MELLITUS
     Route: 065
     Dates: start: 20110101
  2. FUROSEMIDE [Concomitant]
     Route: 065
  3. METFORMIN [Concomitant]
     Route: 065
  4. GLIMEPIRIDE [Concomitant]
     Route: 065
  5. PRANDIN (DEFLAZACORT) [Concomitant]
     Route: 065
  6. ASPIRIN [Concomitant]
     Route: 065
  7. SIMVASTATIN [Concomitant]
     Route: 048
  8. METOPROLOL [Concomitant]
     Route: 065

REACTIONS (4)
  - ARTHROPATHY [None]
  - TREMOR [None]
  - ABASIA [None]
  - INAPPROPRIATE SCHEDULE OF DRUG ADMINISTRATION [None]
